FAERS Safety Report 8084432-9 (Version None)
Quarter: 2012Q1

REPORT INFORMATION
  Report Type: 
  Country: None (occurrence: None)
  Receive Date: 20120128
  Receipt Date: 20110328
  Transmission Date: 20120608
  Serious: No
  Sender: FDA-Public Use
  Company Number: US-ABBOTT-11P-163-0714342-00

PATIENT
  Sex: Male
  Weight: 75.818 kg

DRUGS (1)
  1. HUMIRA [Suspect]
     Indication: PRODUCT USED FOR UNKNOWN INDICATION
     Route: 058
     Dates: start: 20090501, end: 20110101

REACTIONS (2)
  - NEUROPATHY PERIPHERAL [None]
  - MYOPATHY [None]
